FAERS Safety Report 19269110 (Version 2)
Quarter: 2021Q2

REPORT INFORMATION
  Report Type: Report from Study
  Country: ES (occurrence: ES)
  Receive Date: 20210518
  Receipt Date: 20210521
  Transmission Date: 20210717
  Serious: Yes (Other)
  Sender: FDA-Public Use
  Company Number: ES-PFIZER INC-2021388629

PATIENT

DRUGS (3)
  1. CETUXIMAB. [Suspect]
     Active Substance: CETUXIMAB
     Dosage: 250 MG/M2, WEEKLY (14 CYCLES, FOLLOW)
  2. CETUXIMAB. [Suspect]
     Active Substance: CETUXIMAB
     Indication: HEAD AND NECK CANCER
     Dosage: 400 MG/M2, WEEKLY (14 CYCLES, LOAD)
  3. PACLITAXEL. [Suspect]
     Active Substance: PACLITAXEL
     Indication: HEAD AND NECK CANCER
     Dosage: 75 MG/M2, WEEKLY (12 CYCLES)

REACTIONS (3)
  - Tumour haemorrhage [Unknown]
  - Lymphopenia [Unknown]
  - Neutropenia [Unknown]
